FAERS Safety Report 7348542-3 (Version None)
Quarter: 2011Q1

REPORT INFORMATION
  Report Type: 
  Country: None (occurrence: None)
  Receive Date: 20110314
  Receipt Date: 20110304
  Transmission Date: 20110831
  Serious: Yes (Hospitalization)
  Sender: FDA-Public Use
  Company Number: US-BIOGENIDEC-2011BI006915

PATIENT
  Age: 46 Year
  Sex: Female

DRUGS (26)
  1. TYSABRI [Suspect]
     Route: 042
     Dates: start: 20090701
  2. TYSABRI [Suspect]
     Indication: IMMUNE SYSTEM DISORDER
     Route: 042
     Dates: start: 20080725
  3. TYSABRI [Suspect]
     Route: 042
     Dates: start: 20081101, end: 20090301
  4. TYSABRI [Suspect]
     Route: 042
     Dates: start: 20080801, end: 20081001
  5. TYSABRI [Suspect]
     Route: 042
     Dates: start: 20081101, end: 20090301
  6. TYSABRI [Suspect]
     Route: 042
     Dates: start: 20090701
  7. PREDNISONE [Concomitant]
     Dates: start: 20051201
  8. TYSABRI [Suspect]
     Indication: VASCULITIS
     Route: 042
     Dates: start: 20080725
  9. TYSABRI [Suspect]
     Indication: LUNG INFILTRATION
     Route: 042
     Dates: start: 20080725
  10. TYSABRI [Suspect]
     Route: 042
     Dates: start: 20090301, end: 20090401
  11. TYSABRI [Suspect]
     Route: 042
     Dates: start: 20090701
  12. TYSABRI [Suspect]
     Indication: BONE MARROW FAILURE
     Route: 042
     Dates: start: 20080725
  13. TYSABRI [Suspect]
     Route: 042
     Dates: start: 20080801, end: 20081001
  14. TYSABRI [Suspect]
     Route: 042
     Dates: start: 20090301, end: 20090401
  15. ARANESP [Concomitant]
     Indication: ANAEMIA
     Dates: start: 20050101
  16. TYSABRI [Suspect]
     Route: 042
     Dates: start: 20080801, end: 20081001
  17. TYSABRI [Suspect]
     Route: 042
     Dates: start: 20090301, end: 20090401
  18. TYSABRI [Suspect]
     Route: 042
     Dates: start: 20081101, end: 20090301
  19. TYSABRI [Suspect]
     Route: 042
     Dates: start: 20090407, end: 20090701
  20. TYSABRI [Suspect]
     Route: 042
     Dates: start: 20090407, end: 20090701
  21. TYSABRI [Suspect]
     Route: 042
     Dates: start: 20090407, end: 20090701
  22. TYSABRI [Suspect]
     Route: 042
     Dates: start: 20090701
  23. TYSABRI [Suspect]
     Route: 042
     Dates: start: 20080801, end: 20081001
  24. TYSABRI [Suspect]
     Route: 042
     Dates: start: 20081101, end: 20090301
  25. TYSABRI [Suspect]
     Route: 042
     Dates: start: 20090301, end: 20090401
  26. TYSABRI [Suspect]
     Route: 042
     Dates: start: 20090407, end: 20090701

REACTIONS (4)
  - IMMUNE SYSTEM DISORDER [None]
  - VIRAL INFECTION [None]
  - BLISTER [None]
  - VASCULITIS [None]
